FAERS Safety Report 9644212 (Version 2)
Quarter: 2013Q4

REPORT INFORMATION
  Report Type: Spontaneous
  Country: US (occurrence: US)
  Receive Date: 20131024
  Receipt Date: 20131108
  Transmission Date: 20140711
  Serious: No
  Sender: FDA-Public Use
  Company Number: US-009507513-1310USA005845

PATIENT
  Sex: Male

DRUGS (1)
  1. DULERA [Suspect]
     Dosage: 2 PUFFS TWICE A DAY
     Route: 050
     Dates: start: 2010

REACTIONS (4)
  - Drug dose omission [Unknown]
  - Medication error [Unknown]
  - Product quality issue [Unknown]
  - No adverse event [Unknown]
